FAERS Safety Report 8312578-6 (Version None)
Quarter: 2012Q2

REPORT INFORMATION
  Report Type: 
  Country: None (occurrence: None)
  Receive Date: 20120424
  Receipt Date: 20120409
  Transmission Date: 20120825
  Serious: Yes (Hospitalization)
  Sender: FDA-Public Use
  Company Number: 2012MA004739

PATIENT
  Age: 39 Year
  Sex: Female

DRUGS (5)
  1. BENZTROPINE MESYLATE [Concomitant]
  2. LEVODOPA [Concomitant]
  3. ANTICHOLINERGICS [Concomitant]
  4. CARBIDOPA + LEVODOPA [Suspect]
     Dosage: ;QD;
  5. AMANTADINE HCL [Suspect]
     Dosage: 100 MG; QD; PO
     Route: 048

REACTIONS (12)
  - RESPIRATORY DYSKINESIA [None]
  - DYSPNOEA [None]
  - CHEST DISCOMFORT [None]
  - TREMOR [None]
  - BRADYKINESIA [None]
  - GAIT DISTURBANCE [None]
  - FALL [None]
  - RESPIRATORY ALKALOSIS [None]
  - DYSKINESIA [None]
  - POSTURAL REFLEX IMPAIRMENT [None]
  - ANXIETY [None]
  - COGWHEEL RIGIDITY [None]
